FAERS Safety Report 14753075 (Version 1)
Quarter: 2018Q2

REPORT INFORMATION
  Report Type: Spontaneous
  Country: US (occurrence: US)
  Receive Date: 20180412
  Receipt Date: 20180412
  Transmission Date: 20180711
  Serious: No
  Sender: FDA-Public Use
  Company Number: US-MYLANLABS-2018M1018351

PATIENT
  Sex: Female

DRUGS (1)
  1. EMSAM [Suspect]
     Active Substance: SELEGILINE
     Indication: DEPRESSION
     Dosage: 6 MG, UNK
     Route: 062

REACTIONS (3)
  - Blood pressure increased [Unknown]
  - Blood sodium decreased [Unknown]
  - Drug ineffective [Not Recovered/Not Resolved]
